FAERS Safety Report 8290557-5 (Version None)
Quarter: 2012Q2

REPORT INFORMATION
  Report Type: 
  Country: None (occurrence: None)
  Receive Date: 20120417
  Receipt Date: 20110311
  Transmission Date: 20120825
  Serious: No
  Sender: FDA-Public Use
  Company Number: US-ASTRAZENECA-2011SE13925

PATIENT
  Age: 49 Year
  Sex: Female

DRUGS (3)
  1. MEDICATION FOR EPILEPSY [Concomitant]
  2. MEDICATION FOR MIGRAINES [Concomitant]
  3. NEXIUM [Suspect]
     Route: 048

REACTIONS (2)
  - DRUG DOSE OMISSION [None]
  - ADVERSE EVENT [None]
